FAERS Safety Report 5671710-3 (Version None)
Quarter: 2008Q1

REPORT INFORMATION
  Report Type: 
  Country: None (occurrence: None)
  Receive Date: 20080314
  Receipt Date: 20080306
  Transmission Date: 20080703
  Serious: Yes (Other)
  Sender: FDA-Public Use
  Company Number: CHPA2008US04197

PATIENT
  Age: 61 Year
  Sex: Male

DRUGS (2)
  1. MAALOX ANTACID/ANTIGAS RS LIW SMTHCHERRY (NCH)(MAGNESIUM HYDROXIDE, AL [Suspect]
     Indication: DYSPEPSIA
     Dosage: 2 TABLESPOONS, 2-3 TIMES A WEEK, ORAL
     Route: 048
  2. VALERIAN(VALERIANA OFFICINALIS) [Suspect]
     Indication: INSOMNIA
     Dosage: 450 MG, OROPHARINGEAL
     Route: 049

REACTIONS (3)
  - DYSPNOEA [None]
  - NAUSEA [None]
  - SUFFOCATION FEELING [None]
